FAERS Safety Report 4977839-7 (Version None)
Quarter: 2006Q2

REPORT INFORMATION
  Report Type: 
  Country: None (occurrence: None)
  Receive Date: 20060417
  Receipt Date: 20060404
  Transmission Date: 20061013
  Serious: Yes (Other)
  Sender: FDA-Public Use
  Company Number: 2006046892

PATIENT
  Sex: Male

DRUGS (5)
  1. CELEBREX [Suspect]
     Indication: ILL-DEFINED DISORDER
  2. NEURONTIN [Suspect]
     Indication: ILL-DEFINED DISORDER
  3. TRAMADOL HCL [Concomitant]
  4. DIAZEPAM [Concomitant]
  5. METFORMIN [Concomitant]

REACTIONS (7)
  - ANXIETY [None]
  - DEPRESSION [None]
  - DIABETES MELLITUS [None]
  - FEELING ABNORMAL [None]
  - HERPES ZOSTER [None]
  - HYPERTENSION [None]
  - MYOCARDIAL INFARCTION [None]
